FAERS Safety Report 4449419-3 (Version None)
Quarter: 2004Q3

REPORT INFORMATION
  Report Type: 
  Country: None (occurrence: None)
  Receive Date: 20040914
  Receipt Date: 20040830
  Transmission Date: 20050211
  Serious: Yes (Other)
  Sender: FDA-Public Use
  Company Number: M2004.1132

PATIENT
  Age: 65 Year
  Sex: Male
  Weight: 49 kg

DRUGS (6)
  1. ISONIAZID [Suspect]
     Indication: PULMONARY TUBERCULOSIS
     Dosage: SEE IMAGE
  2. ISONIAZID [Suspect]
     Indication: PULMONARY TUBERCULOSIS
     Dosage: SEE IMAGE
     Dates: start: 20030616
  3. RIMACTANE [Suspect]
     Indication: PULMONARY TUBERCULOSIS
     Dosage: 450 MG/D
     Dates: start: 20030616
  4. ETHAMBUTOL HCL [Concomitant]
  5. PYRAZINAMIDE [Concomitant]
  6. LEVOFLOXACIN [Concomitant]

REACTIONS (11)
  - C-REACTIVE PROTEIN INCREASED [None]
  - HYPOXIA [None]
  - INTERSTITIAL LUNG DISEASE [None]
  - LEUKOCYTOSIS [None]
  - LUNG INFILTRATION [None]
  - LYMPHOCYTE STIMULATION TEST POSITIVE [None]
  - NAUSEA [None]
  - PNEUMONITIS [None]
  - PYREXIA [None]
  - RED BLOOD CELL SEDIMENTATION RATE INCREASED [None]
  - RESPIRATORY DISTRESS [None]
